FAERS Safety Report 18534213 (Version 1)
Quarter: 2020Q4

REPORT INFORMATION
  Report Type: Spontaneous
  Country: US (occurrence: US)
  Receive Date: 20201123
  Receipt Date: 20201123
  Transmission Date: 20210114
  Serious: Yes (Hospitalization)
  Sender: FDA-Public Use
  Company Number: None

PATIENT
  Age: 61 Year
  Sex: Male

DRUGS (13)
  1. URSODIOL 300MG [Concomitant]
  2. OXYCONTIN 10MG [Concomitant]
  3. BACTRIM 400-80MG [Concomitant]
  4. CLOPIDOGREL [Concomitant]
     Active Substance: CLOPIDOGREL BISULFATE
  5. METOPROLOL 100MG [Concomitant]
     Active Substance: METOPROLOL
  6. TASIGNA [Suspect]
     Active Substance: NILOTINIB
     Indication: ACUTE LYMPHOCYTIC LEUKAEMIA
     Route: 048
     Dates: start: 20190513
  7. PREDNISONE 10MG [Concomitant]
     Active Substance: PREDNISONE
  8. ACYCLOVIR 400MG TABLETS [Concomitant]
  9. MAGNSEIUM OXIDE 400MG [Concomitant]
  10. DOXYCYCLINE 100MG [Concomitant]
     Active Substance: DOXYCYCLINE
  11. TACROLIMUS 0.5MG [Concomitant]
     Active Substance: TACROLIMUS
  12. AMLODIPINE [Concomitant]
     Active Substance: AMLODIPINE BESYLATE
  13. ASPIRIN 81MG [Concomitant]
     Active Substance: ASPIRIN

REACTIONS (1)
  - Infection [None]

NARRATIVE: CASE EVENT DATE: 20201102
